FAERS Safety Report 15470697 (Version 6)
Quarter: 2019Q1

REPORT INFORMATION
  Report Type: Report from Study
  Country: GB (occurrence: GB)
  Receive Date: 20181005
  Receipt Date: 20190125
  Transmission Date: 20190417
  Serious: Yes (Hospitalization)
  Sender: FDA-Public Use
  Company Number: GB-VERTEX PHARMACEUTICALS-2018-007005

PATIENT
  Age: 34 Year
  Sex: Female
  Weight: 56 kg

DRUGS (22)
  1. IBUPROFEN. [Concomitant]
     Active Substance: IBUPROFEN
     Indication: PAIN IN JAW
     Dosage: 400 MG, QD
     Route: 048
     Dates: start: 20180805, end: 20180809
  2. MOMETASONE FUROATE. [Concomitant]
     Active Substance: MOMETASONE FUROATE
     Indication: SINUS DISORDER
     Dosage: 100 MCG, PRN
     Route: 045
     Dates: start: 20160120
  3. VX-659 [Suspect]
     Active Substance: INVESTIGATIONAL PRODUCT
     Indication: CYSTIC FIBROSIS
     Dosage: 240 MG QD/100 MG QD/150 MG Q12H
     Route: 048
     Dates: start: 20180516, end: 20180808
  4. CREON [Concomitant]
     Active Substance: PANCRELIPASE AMYLASE\PANCRELIPASE LIPASE\PANCRELIPASE PROTEASE
     Indication: PANCREATIC FAILURE
     Dosage: UNK
     Dates: start: 2008
  5. LAXIDO [Concomitant]
     Active Substance: POLYETHYLENE GLYCOL 3350\POTASSIUM CHLORIDE\SODIUM BICARBONATE\SODIUM CHLORIDE
     Indication: DISTAL INTESTINAL OBSTRUCTION SYNDROME
     Dosage: 2 SACHETS, PRN
     Route: 048
     Dates: start: 2013
  6. ADCAL D3 [Concomitant]
     Active Substance: CALCIUM CARBONATE\CHOLECALCIFEROL
     Indication: OSTEOPENIA
     Dosage: 750/5 MG, QD
     Route: 048
     Dates: start: 2012, end: 20180923
  7. VX-661/VX-770 [Suspect]
     Active Substance: IVACAFTOR\TEZACAFTOR
     Indication: CYSTIC FIBROSIS
     Dosage: 240 MG QD/100 MG QD/150 MG Q12H
     Route: 048
     Dates: start: 20180516, end: 20180808
  8. PEPPERMINT OIL [Concomitant]
     Active Substance: PEPPERMINT OIL
     Indication: GASTROOESOPHAGEAL REFLUX DISEASE
     Dosage: 0.2 MILLILITER, PRN
     Route: 048
     Dates: start: 20170316, end: 20180923
  9. FIASP [Concomitant]
     Active Substance: INSULIN ASPART
     Indication: CYSTIC FIBROSIS RELATED DIABETES
     Dosage: UNK
     Dates: start: 20180423
  10. ESOMEPRAZOLE. [Concomitant]
     Active Substance: ESOMEPRAZOLE MAGNESIUM
     Dosage: 20 MG, QD
     Route: 048
     Dates: start: 20180926
  11. ACETYLCYSTEIN [Concomitant]
     Active Substance: ACETYLCYSTEINE
     Indication: DISTAL INTESTINAL OBSTRUCTION SYNDROME
     Dosage: 600 MG, TID
     Route: 048
     Dates: start: 20180103, end: 20180923
  12. GASTROGRAFINE [Concomitant]
     Active Substance: DIATRIZOATE MEGLUMINE\DIATRIZOATE SODIUM
     Indication: CONSTIPATION
     Dosage: ENEMA, QD
     Dates: start: 20180905, end: 20180905
  13. ESOMEPRAZOLE. [Concomitant]
     Active Substance: ESOMEPRAZOLE MAGNESIUM
     Indication: GASTROOESOPHAGEAL REFLUX DISEASE
     Dosage: 40 MG, QD
     Route: 048
     Dates: start: 2008, end: 20180925
  14. ETODOLAC. [Concomitant]
     Active Substance: ETODOLAC
     Indication: ARTHROPATHY
     Dosage: 600 MG, QD
     Route: 048
     Dates: start: 201705, end: 20180914
  15. ZOPLICONE [Concomitant]
     Active Substance: ZOPICLONE
     Indication: INSOMNIA
     Dosage: 3.75 MG, QD
     Route: 048
     Dates: start: 20180821, end: 20180914
  16. MONTELUKAST [Concomitant]
     Active Substance: MONTELUKAST SODIUM
     Indication: ASTHMA
     Dosage: 10 MG, QD
     Route: 048
     Dates: start: 20180313, end: 20180920
  17. VITAMIN E                          /00110501/ [Concomitant]
     Active Substance: TOCOPHEROL
     Indication: CYSTIC FIBROSIS LUNG
     Dosage: 225 MG, QD
     Route: 048
     Dates: start: 2008, end: 20180923
  18. FLIXOTIDE [Concomitant]
     Active Substance: FLUTICASONE PROPIONATE
     Indication: CYSTIC FIBROSIS LUNG
     Dosage: 250 MCG, QD
     Route: 055
     Dates: start: 2013
  19. SALBUTAMOL [Concomitant]
     Active Substance: ALBUTEROL
     Indication: CYSTIC FIBROSIS LUNG
     Dosage: 200 MCG, PRN
     Route: 055
     Dates: start: 2008
  20. CLOMIPRAMINE [Concomitant]
     Active Substance: CLOMIPRAMINE
     Indication: ANXIETY
     Dosage: 25 MG, QD
     Route: 048
     Dates: start: 20180122, end: 20180809
  21. SERETIDE [Concomitant]
     Active Substance: FLUTICASONE PROPIONATE\SALMETEROL XINAFOATE
     Indication: CYSTIC FIBROSIS LUNG
     Dosage: 125 MCG, QD
     Route: 055
     Dates: start: 20170713
  22. AZITHROMYCIN ANHYDROUS. [Concomitant]
     Active Substance: AZITHROMYCIN ANHYDROUS
     Indication: CYSTIC FIBROSIS LUNG
     Dosage: 500MG M/W/F
     Route: 048
     Dates: start: 20031023, end: 20180809

REACTIONS (2)
  - Blood bilirubin increased [Recovered/Resolved]
  - Vomiting [Recovered/Resolved]

NARRATIVE: CASE EVENT DATE: 20180923
